FAERS Safety Report 7973044-0 (Version None)
Quarter: 2011Q4

REPORT INFORMATION
  Report Type: 
  Country: None (occurrence: None)
  Receive Date: 20111213
  Receipt Date: 20111129
  Transmission Date: 20120403
  Serious: Yes (Hospitalization, Other)
  Sender: FDA-Public Use
  Company Number: JP-PFIZER INC-2011278356

PATIENT
  Age: 65 Year
  Sex: Male

DRUGS (5)
  1. AMLODIPINE [Suspect]
     Indication: HYPERTENSION
     Dosage: 5 MG, UNK
     Route: 048
     Dates: start: 20111013, end: 20111021
  2. PRAVASTATIN SODIUM [Suspect]
     Indication: HYPERLIPIDAEMIA
     Dosage: 10 MG, UNK
     Route: 048
     Dates: start: 20111006, end: 20111021
  3. CILOSTAZOL [Suspect]
     Indication: CEREBRAL INFARCTION
     Dosage: 100 MG, UNK
     Route: 048
     Dates: start: 20111006, end: 20111021
  4. MICARDIS [Suspect]
     Indication: HYPERTENSION
     Dosage: UNK
     Route: 048
     Dates: start: 20111006, end: 20111021
  5. AMLODIPINE [Suspect]
     Dosage: 1 DF, 1X/DAY
     Dates: start: 20111124

REACTIONS (1)
  - INTERSTITIAL LUNG DISEASE [None]
